FAERS Safety Report 25908387 (Version 2)
Quarter: 2025Q4

REPORT INFORMATION
  Report Type: Spontaneous
  Country: EU (occurrence: EU)
  Receive Date: 20251010
  Receipt Date: 20251018
  Transmission Date: 20260117
  Serious: Yes (Other)
  Sender: ABBVIE
  Company Number: EU-TAKEDA-2025TUS080107

PATIENT
  Age: 77 Year
  Sex: Male

DRUGS (4)
  1. LEUPROLIDE ACETATE [Suspect]
     Active Substance: LEUPROLIDE ACETATE
     Indication: Hormone therapy
     Dosage: DOSAGE: 11.25 MG/ML
     Route: 065
     Dates: start: 2011
  2. LEUPROLIDE ACETATE [Suspect]
     Active Substance: LEUPROLIDE ACETATE
     Indication: Prostate cancer
  3. ENZALUTAMIDE [Suspect]
     Active Substance: ENZALUTAMIDE
     Indication: Hormone therapy
     Dosage: 160 MILLIGRAM, QD
     Route: 065
     Dates: start: 202209
  4. ABIRATERONE [Suspect]
     Active Substance: ABIRATERONE
     Indication: Prostatic adenoma
     Dosage: 1000 MILLIGRAM, QD
     Route: 065
     Dates: start: 202407

REACTIONS (3)
  - Hereditary optic atrophy [Recovering/Resolving]
  - Disease progression [Unknown]
  - Drug ineffective [Unknown]

NARRATIVE: CASE EVENT DATE: 20230401
